FAERS Safety Report 15065971 (Version 3)
Quarter: 2018Q3

REPORT INFORMATION
  Report Type: Report from Study
  Country: US (occurrence: US)
  Receive Date: 20180626
  Receipt Date: 20180806
  Transmission Date: 20181010
  Serious: Yes (Hospitalization, Other)
  Sender: FDA-Public Use
  Company Number: US-ASTELLAS-2018US025239

PATIENT
  Age: 38 Year
  Sex: Female

DRUGS (4)
  1. MIRABEGRON [Suspect]
     Active Substance: MIRABEGRON
     Indication: HYPERTONIC BLADDER
     Route: 048
     Dates: start: 201704
  2. MIRABEGRON [Suspect]
     Active Substance: MIRABEGRON
     Indication: CYSTITIS INTERSTITIAL
  3. LOTENSIN [Concomitant]
     Active Substance: BENAZEPRIL HYDROCHLORIDE
     Indication: PRODUCT USED FOR UNKNOWN INDICATION
     Dosage: UNK UNK, UNKNOWN FREQ.
     Route: 065
  4. TIROSINT [Concomitant]
     Active Substance: LEVOTHYROXINE SODIUM
     Indication: PRODUCT USED FOR UNKNOWN INDICATION
     Dosage: UNK UNK, UNKNOWN FREQ.
     Route: 065

REACTIONS (6)
  - Gait disturbance [Unknown]
  - Malaise [Unknown]
  - Pain [Unknown]
  - Blood pressure increased [Recovered/Resolved]
  - Dysstasia [Unknown]
  - Therapeutic response unexpected [Unknown]

NARRATIVE: CASE EVENT DATE: 20180530
